FAERS Safety Report 4336047-3 (Version None)
Quarter: 2004Q2

REPORT INFORMATION
  Report Type: 
  Country: None (occurrence: None)
  Receive Date: 20040406
  Receipt Date: 20040401
  Transmission Date: 20050107
  Serious: Yes (Life-Threatening, Hospitalization)
  Sender: FDA-Public Use
  Company Number: TCI2004A01355

PATIENT
  Age: 83 Year
  Sex: Male

DRUGS (1)
  1. LEUPLIN FOR INJECTION KIT3.75 (LEUPROLIDE ACETATE) (INJECTION) [Suspect]
     Indication: PROSTATE CANCER
     Dosage: 3.75 MG (3.75 MG 1 IN 28 D) SUBCUTANEOUS
     Route: 058

REACTIONS (2)
  - DEPRESSED LEVEL OF CONSCIOUSNESS [None]
  - INTERSTITIAL LUNG DISEASE [None]
